FAERS Safety Report 5592108-2 (Version None)
Quarter: 2008Q1

REPORT INFORMATION
  Report Type: 
  Country: None (occurrence: None)
  Receive Date: 20080115
  Receipt Date: 20070425
  Transmission Date: 20080703
  Serious: No
  Sender: FDA-Public Use
  Company Number: US-ABBOTT-07P-163-0406470-00

PATIENT
  Sex: Female
  Weight: 78.996 kg

DRUGS (2)
  1. ADVICOR [Suspect]
     Indication: DYSLIPIDAEMIA
     Route: 048
     Dates: start: 20070101, end: 20070421
  2. ADVICOR [Suspect]
     Indication: DYSLIPIDAEMIA
     Route: 048
     Dates: start: 20061201, end: 20070421

REACTIONS (11)
  - BLOOD PRESSURE DECREASED [None]
  - CHILLS [None]
  - DIARRHOEA [None]
  - FACIAL BONES FRACTURE [None]
  - FLUSHING [None]
  - LOSS OF CONSCIOUSNESS [None]
  - NAUSEA [None]
  - POLLAKIURIA [None]
  - SINUS CONGESTION [None]
  - SYNCOPE [None]
  - VOMITING [None]
